FAERS Safety Report 13378939 (Version 1)
Quarter: 2017Q1

REPORT INFORMATION
  Report Type: Spontaneous
  Country: GB (occurrence: GB)
  Receive Date: 20170328
  Receipt Date: 20170328
  Transmission Date: 20170429
  Serious: Yes (Other)
  Sender: FDA-Public Use
  Company Number: GB-OTSUKA-2017_004184

PATIENT
  Age: 39 Year
  Sex: Female
  Weight: 82 kg

DRUGS (11)
  1. JINARC [Suspect]
     Active Substance: TOLVAPTAN
     Dosage: 45 MG, UNK (IN MORNING)
     Route: 048
     Dates: start: 201605
  2. JINARC [Suspect]
     Active Substance: TOLVAPTAN
     Dosage: 15 MG, UNK (IN EVENING)
     Route: 048
     Dates: start: 201605
  3. JINARC [Suspect]
     Active Substance: TOLVAPTAN
     Dosage: 30 MG, UNK (IN EVENING)
     Route: 048
     Dates: start: 201606
  4. JINARC [Suspect]
     Active Substance: TOLVAPTAN
     Dosage: 30 MG, UNK (IN EVENING)
     Route: 048
     Dates: start: 201607, end: 201612
  5. JINARC [Suspect]
     Active Substance: TOLVAPTAN
     Dosage: 60 MG, UNK (IN MORNING)
     Route: 048
     Dates: start: 201606
  6. JINARC [Suspect]
     Active Substance: TOLVAPTAN
     Dosage: 120MG, UNK
     Route: 048
     Dates: start: 20160516, end: 201612
  7. AMLODIPINE [Concomitant]
     Active Substance: AMLODIPINE BESYLATE
     Indication: PRODUCT USED FOR UNKNOWN INDICATION
     Dosage: UNK
     Route: 065
  8. JINARC [Suspect]
     Active Substance: TOLVAPTAN
     Dosage: 30 MG, QD (IN EVENING)
     Route: 065
     Dates: start: 201603
  9. ALFACALCIDOL [Concomitant]
     Active Substance: ALFACALCIDOL
     Indication: PRODUCT USED FOR UNKNOWN INDICATION
     Dosage: UNK
     Route: 065
  10. JINARC [Suspect]
     Active Substance: TOLVAPTAN
     Indication: CONGENITAL CYSTIC KIDNEY DISEASE
     Dosage: 90 MG, QD (IN MORNING)
     Route: 065
     Dates: start: 201603
  11. JINARC [Suspect]
     Active Substance: TOLVAPTAN
     Dosage: 90 MG, UNK (IN MORNING)
     Route: 048
     Dates: start: 201607, end: 201612

REACTIONS (2)
  - Candida infection [Recovered/Resolved]
  - Gastrooesophageal reflux disease [Unknown]

NARRATIVE: CASE EVENT DATE: 201612
